FAERS Safety Report 6837302-5 (Version None)
Quarter: 2010Q3

REPORT INFORMATION
  Report Type: 
  Country: None (occurrence: None)
  Receive Date: 20100713
  Receipt Date: 20070509
  Transmission Date: 20110219
  Serious: No
  Sender: FDA-Public Use
  Company Number: US-PFIZER INC-2007038746

PATIENT
  Sex: Female
  Weight: 47.727 kg

DRUGS (3)
  1. CHANTIX [Suspect]
     Indication: SMOKING CESSATION THERAPY
     Dates: start: 20070401
  2. CRESTOR [Concomitant]
  3. ESTRACE [Concomitant]

REACTIONS (7)
  - ASTHENIA [None]
  - BALANCE DISORDER [None]
  - INCREASED APPETITE [None]
  - IRRITABILITY [None]
  - LIBIDO INCREASED [None]
  - MUSCULOSKELETAL STIFFNESS [None]
  - THERAPEUTIC RESPONSE UNEXPECTED [None]
